FAERS Safety Report 5486010-4 (Version None)
Quarter: 2007Q4

REPORT INFORMATION
  Report Type: 
  Country: None (occurrence: None)
  Receive Date: 20071012
  Receipt Date: 20071010
  Transmission Date: 20080405
  Serious: Yes (Life-Threatening, Hospitalization)
  Sender: FDA-Public Use
  Company Number: THQ2007A00971

PATIENT
  Sex: Female

DRUGS (2)
  1. PIOGLITAZONE HCL [Suspect]
     Dosage: 105 MG, OTHER, PER ORAL
     Route: 050
  2. ALCOHOL (ETHANOL) [Concomitant]

REACTIONS (4)
  - HYPERGLYCAEMIA [None]
  - HYPOGLYCAEMIA [None]
  - INTENTIONAL OVERDOSE [None]
  - SUICIDE ATTEMPT [None]
